FAERS Safety Report 6273826-X (Version None)
Quarter: 2009Q3

REPORT INFORMATION
  Report Type: 
  Country: None (occurrence: None)
  Receive Date: 20090716
  Receipt Date: 20090709
  Transmission Date: 20100115
  Serious: Yes (Life-Threatening)
  Sender: FDA-Public Use
  Company Number: ADR6062009 (ARROW LOG NO.  2008AG0005)

PATIENT
  Sex: Female

DRUGS (1)
  1. CIPROFLOXACIN (MFR: ARROW GENERICS LTD) [Suspect]
     Dosage: 1 G , ORAL
     Route: 048
     Dates: start: 20071026, end: 20071101

REACTIONS (2)
  - DEEP VEIN THROMBOSIS [None]
  - PYREXIA [None]
